FAERS Safety Report 11384448 (Version 1)
Quarter: 2015Q3

REPORT INFORMATION
  Report Type: Spontaneous
  Country: US (occurrence: US)
  Receive Date: 20150811
  Receipt Date: 20150811
  Transmission Date: 20151125
  Serious: No
  Sender: FDA-Public Use
  Company Number: US-ELI_LILLY_AND_COMPANY-US201101005961

PATIENT
  Age: 68 Year
  Sex: Male
  Weight: 97.05 kg

DRUGS (1)
  1. CIALIS [Suspect]
     Active Substance: TADALAFIL
     Indication: ERECTILE DYSFUNCTION
     Dosage: 20 MG, AS NEEDED

REACTIONS (3)
  - Drug ineffective [Not Recovered/Not Resolved]
  - Fluid retention [Recovered/Resolved]
  - Spontaneous penile erection [Unknown]
